FAERS Safety Report 6636969-4 (Version None)
Quarter: 2010Q1

REPORT INFORMATION
  Report Type: 
  Country: None (occurrence: None)
  Receive Date: 20100301
  Receipt Date: 20100201
  Transmission Date: 20100710
  Serious: Yes (Hospitalization)
  Sender: FDA-Public Use
  Company Number: 000125310-AKO-5002

PATIENT
  Age: 69 Year
  Sex: Male

DRUGS (1)
  1. AK-FLUOR 10% [Suspect]
     Indication: ANGIOGRAM
     Dosage: OT, IV
     Route: 042
     Dates: start: 20100128, end: 20100128

REACTIONS (2)
  - DYSGEUSIA [None]
  - NAUSEA [None]
